FAERS Safety Report 4502474-4 (Version None)
Quarter: 2004Q4

REPORT INFORMATION
  Report Type: 
  Country: None (occurrence: None)
  Receive Date: 20041110
  Receipt Date: 20041103
  Transmission Date: 20050328
  Serious: Yes (Hospitalization)
  Sender: FDA-Public Use
  Company Number: 6011423F

PATIENT

DRUGS (1)
  1. NIASPAN [Suspect]

REACTIONS (1)
  - HYPERSENSITIVITY [None]
